FAERS Safety Report 7553715-0 (Version None)
Quarter: 2011Q2

REPORT INFORMATION
  Report Type: 
  Country: None (occurrence: None)
  Receive Date: 20110617
  Receipt Date: 20110405
  Transmission Date: 20111010
  Serious: Yes (Other)
  Sender: FDA-Public Use
  Company Number: US-JNJFOC-20110402872

PATIENT
  Sex: Male

DRUGS (3)
  1. REMICADE [Suspect]
     Indication: COLITIS ULCERATIVE
     Route: 042
     Dates: start: 20110327
  2. REMICADE [Suspect]
     Route: 042
     Dates: start: 20080101
  3. STEROIDS NOS [Concomitant]
     Route: 065

REACTIONS (2)
  - PEMPHIGOID [None]
  - ALOPECIA [None]
